FAERS Safety Report 9419601 (Version 2)
Quarter: 2013Q4

REPORT INFORMATION
  Report Type: Spontaneous
  Country: US (occurrence: US)
  Receive Date: 20130725
  Receipt Date: 20131031
  Transmission Date: 20140711
  Serious: Yes (Death, Life-Threatening, Disabling, Other)
  Sender: FDA-Public Use
  Company Number: US-MSD-1207USA008248

PATIENT
  Age: 53 Year
  Sex: Male
  Weight: 113.38 kg

DRUGS (1)
  1. JANUMET [Suspect]
     Indication: DIABETES MELLITUS
     Dosage: 50/500 MG BID
     Route: 048
     Dates: start: 200710, end: 200810

REACTIONS (1)
  - Pancreatic carcinoma [Fatal]
